FAERS Safety Report 4363805-1 (Version None)
Quarter: 2004Q2

REPORT INFORMATION
  Report Type: 
  Country: None (occurrence: None)
  Receive Date: 20040521
  Receipt Date: 20040510
  Transmission Date: 20050107
  Serious: Yes (Hospitalization, Other)
  Sender: FDA-Public Use
  Company Number: 2004206103JP

PATIENT
  Age: 53 Year
  Sex: Female
  Weight: 56 kg

DRUGS (3)
  1. PROVERA [Suspect]
     Indication: HORMONE REPLACEMENT THERAPY
     Dosage: 2.5 MG, QD, ORAL
     Route: 048
     Dates: start: 19951205, end: 19961010
  2. PREMARIN [Suspect]
     Indication: HORMONE REPLACEMENT THERAPY
     Dosage: 0.625 MG, QD, ORAL
     Route: 048
     Dates: start: 19951205, end: 19961010
  3. KAMI-SHOYO-SAN [Concomitant]

REACTIONS (1)
  - BREAST CANCER [None]
